FAERS Safety Report 9450422 (Version 1)
Quarter: 2013Q3

REPORT INFORMATION
  Report Type: Spontaneous
  Country: US (occurrence: US)
  Receive Date: 20130809
  Receipt Date: 20130809
  Transmission Date: 20140515
  Serious: Yes (Hospitalization, Other)
  Sender: FDA-Public Use
  Company Number: US-FRI-1000047573

PATIENT
  Age: 63 Year
  Sex: Female

DRUGS (17)
  1. VIIBRYD [Suspect]
     Indication: DEPRESSION
     Dosage: 10 MG
     Route: 048
  2. VIIBRYD [Suspect]
     Dosage: 20 MG
     Route: 048
  3. VIIBRYD [Suspect]
     Dosage: 40 MG
     Route: 048
  4. VIIBRYD [Suspect]
     Dosage: 40 MG
     Route: 048
  5. COUMADIN [Concomitant]
     Indication: THROMBOSIS
  6. NOVALOG [Concomitant]
     Indication: DIABETES MELLITUS
     Dosage: 34 UNITS QAM 15 UNITS QPM
     Route: 058
  7. PROTONIX [Concomitant]
     Indication: GASTROOESOPHAGEAL REFLUX DISEASE
     Dosage: 40 MG
  8. XANAX [Concomitant]
     Dosage: 1.5 MG
  9. CARDIA XT [Concomitant]
     Indication: HYPERTENSION
     Dosage: 240 MG
  10. BUMEX [Concomitant]
     Dosage: 2 MG
  11. ADDERALL [Concomitant]
     Indication: NARCOLEPSY
     Dosage: 20 MG
  12. LEVOTHYROXINE [Concomitant]
     Indication: HYPOTHYROIDISM
     Dosage: 112 MCG
  13. PAROXETINE [Concomitant]
     Dosage: 20 MG
  14. PERCOCET [Concomitant]
     Dosage: 5/325 MG
  15. COZAAR [Concomitant]
     Indication: HYPERTENSION
     Dosage: 25 MG
  16. DIVALPROEX [Concomitant]
     Dosage: 500 MG
  17. CITALOPRAM [Concomitant]
     Dosage: 40 MG

REACTIONS (5)
  - Kidney infection [Recovered/Resolved]
  - Blood pressure increased [Recovered/Resolved]
  - Blood glucose fluctuation [Recovered/Resolved]
  - Vomiting [Recovered/Resolved]
  - Crying [Recovered/Resolved]
